FAERS Safety Report 7207337-1 (Version None)
Quarter: 2010Q4

REPORT INFORMATION
  Report Type: 
  Country: None (occurrence: None)
  Receive Date: 20101217
  Receipt Date: 20101202
  Transmission Date: 20110411
  Serious: Yes (Hospitalization, Disabling, Other)
  Sender: FDA-Public Use
  Company Number: 1000017090

PATIENT
  Age: 88 Year
  Sex: Female
  Weight: 53 kg

DRUGS (10)
  1. MEMANTINE [Suspect]
     Indication: DEMENTIA ALZHEIMER'S TYPE
     Dosage: 20 MG (20 MG, 1 IN 1 D), ORAL
     Route: 048
     Dates: start: 20070101, end: 20100910
  2. MEMANTINE [Suspect]
     Indication: VASCULAR DEMENTIA
     Dosage: 20 MG (20 MG, 1 IN 1 D), ORAL
     Route: 048
     Dates: start: 20070101, end: 20100910
  3. MEMANTINE [Suspect]
     Indication: DEMENTIA ALZHEIMER'S TYPE
     Dosage: 20 MG (20 MG, 1 IN 1 D), ORAL
     Route: 048
     Dates: start: 20100917
  4. MEMANTINE [Suspect]
     Indication: VASCULAR DEMENTIA
     Dosage: 20 MG (20 MG, 1 IN 1 D), ORAL
     Route: 048
     Dates: start: 20100917
  5. PLAVIX [Concomitant]
  6. ASPEGIC (ACETYLSALICLIC ACID) (ACETYLSALICLIC ACID) [Concomitant]
  7. OMEPRAZOLE [Concomitant]
  8. ATORVASTATIN CALCIUM [Concomitant]
  9. ATHYMIL (MIANSERIN HYDROCHLORIDE) (MIANSERIN HYDROCHLORIDE) [Concomitant]
  10. ACTONEL (RISEDRONATE SODIUM) (RISEDRONATE SODIUM) [Concomitant]

REACTIONS (2)
  - CARDIAC DISORDER [None]
  - CEREBELLAR ATAXIA [None]
